FAERS Safety Report 6536840-2 (Version None)
Quarter: 2010Q1

REPORT INFORMATION
  Report Type: 
  Country: None (occurrence: None)
  Receive Date: 20100107
  Receipt Date: 20091221
  Transmission Date: 20100710
  Serious: Yes (Death, Hospitalization)
  Sender: FDA-Public Use
  Company Number: A-US2009-32133

PATIENT
  Age: 78 Year
  Sex: Male

DRUGS (3)
  1. VENTAVIS [Suspect]
     Indication: PULMONARY ARTERIAL HYPERTENSION
     Dosage: 6 X DAY, RESPIRATORY
     Route: 055
     Dates: start: 20090501
  2. SILDENAFIL [Concomitant]
  3. WARFARIN SODIUM [Concomitant]

REACTIONS (4)
  - DISEASE PROGRESSION [None]
  - OFF LABEL USE [None]
  - PULMONARY ARTERIAL HYPERTENSION [None]
  - RESPIRATORY FAILURE [None]
